FAERS Safety Report 13594432 (Version 1)
Quarter: 2017Q2

REPORT INFORMATION
  Report Type: Spontaneous
  Country: IT (occurrence: IT)
  Receive Date: 20170530
  Receipt Date: 20170530
  Transmission Date: 20170830
  Serious: Yes (Other)
  Sender: FDA-Public Use
  Company Number: IT-GILEAD-2017-0275010

PATIENT
  Age: 43 Year
  Sex: Female

DRUGS (5)
  1. AMBISOME [Suspect]
     Active Substance: AMPHOTERICIN B
     Indication: LEISHMANIASIS
     Dosage: 3 MG/KG, QD
     Route: 065
  2. NEVIRAPINE. [Concomitant]
     Active Substance: NEVIRAPINE
     Indication: HIV INFECTION
     Dosage: UNK
     Dates: start: 2009
  3. TENOFOVIR DISOPROXIL FUMARATE. [Suspect]
     Active Substance: TENOFOVIR DISOPROXIL FUMARATE
     Indication: HIV INFECTION
     Dosage: UNK
     Route: 065
     Dates: start: 2009
  4. AMBISOME [Suspect]
     Active Substance: AMPHOTERICIN B
     Dosage: 3 MG/KG, Q1WK
     Route: 065
  5. EMTRICITABINE [Suspect]
     Active Substance: EMTRICITABINE
     Indication: HIV INFECTION
     Dosage: UNK
     Route: 065
     Dates: start: 2009

REACTIONS (1)
  - Blood HIV RNA [Unknown]
